FAERS Safety Report 7041967-5 (Version None)
Quarter: 2010Q4

REPORT INFORMATION
  Report Type: 
  Country: None (occurrence: None)
  Receive Date: 20101013
  Receipt Date: 20100511
  Transmission Date: 20110411
  Serious: No
  Sender: FDA-Public Use
  Company Number: US-ASTRAZENECA-2010SE21436

PATIENT
  Age: 50 Year
  Sex: Female
  Weight: 88.5 kg

DRUGS (5)
  1. SYMBICORT [Suspect]
     Indication: ASTHMA
     Dosage: 160 UG
     Route: 055
     Dates: start: 20100201
  2. SYMBICORT [Suspect]
     Dosage: 160 UG
     Route: 055
  3. ALBUTEROL [Concomitant]
  4. DOXYCYCLINE [Concomitant]
  5. PREDNISONE [Concomitant]

REACTIONS (7)
  - BRONCHITIS [None]
  - DRY MOUTH [None]
  - DRY THROAT [None]
  - DYSPNOEA [None]
  - INCORRECT DOSE ADMINISTERED [None]
  - NERVOUSNESS [None]
  - OROPHARYNGEAL PAIN [None]
